FAERS Safety Report 4726084-9 (Version None)
Quarter: 2005Q3

REPORT INFORMATION
  Report Type: 
  Country: None (occurrence: None)
  Receive Date: 20050726
  Receipt Date: 20050726
  Transmission Date: 20060218
  Serious: Yes (Hospitalization)
  Sender: FDA-Public Use
  Company Number: None

PATIENT
  Age: 56 Year
  Sex: Male

DRUGS (12)
  1. PEGINTERFERON ALPHA 2A [Suspect]
     Indication: HEPATITIS C
     Dosage: 180MG SC WEEKLY
     Route: 058
     Dates: start: 20050414, end: 20050617
  2. RIBAVIRIN [Suspect]
     Indication: HEPATITIS C
     Dosage: SEE IMAGE
     Route: 048
     Dates: start: 20050414, end: 20050617
  3. CLOPIDOGREL BISULFATE [Concomitant]
  4. CYCLOBENZAPRINE HCL [Concomitant]
  5. FELODIPINE [Concomitant]
  6. IBUPROFEN [Concomitant]
  7. NAPROXEN [Concomitant]
  8. OMEPRAZOLE [Concomitant]
  9. OXYCODONE HCL [Concomitant]
  10. ACETAMIN. [Concomitant]
  11. SERTRALINE HCL [Concomitant]
  12. SIMVASTATIN [Concomitant]

REACTIONS (3)
  - PAPILLOEDEMA [None]
  - PORTAL VEIN OCCLUSION [None]
  - VISUAL ACUITY REDUCED [None]
